FAERS Safety Report 19408202 (Version 1)
Quarter: 2021Q2

REPORT INFORMATION
  Report Type: Other
  Country: US (occurrence: US)
  Receive Date: 20210612
  Receipt Date: 20210612
  Transmission Date: 20210717
  Serious: Yes (Other)
  Sender: FDA-Public Use
  Company Number: US-ROCHE-2845352

PATIENT

DRUGS (4)
  1. INTERLEUKIN?2 [Suspect]
     Active Substance: ALDESLEUKIN
     Indication: B-CELL LYMPHOMA
     Dosage: 6 MIU
     Route: 065
  2. RITUXIMAB. [Suspect]
     Active Substance: RITUXIMAB
     Indication: B-CELL LYMPHOMA
     Route: 041
  3. FLUDARABINE [Suspect]
     Active Substance: FLUDARABINE PHOSPHATE
     Indication: B-CELL LYMPHOMA
     Route: 065
  4. CYCLOPHOSPHAMIDE. [Suspect]
     Active Substance: CYCLOPHOSPHAMIDE
     Indication: B-CELL LYMPHOMA
     Route: 065

REACTIONS (3)
  - Febrile neutropenia [Unknown]
  - Neutrophil count decreased [Unknown]
  - Platelet count decreased [Unknown]
